FAERS Safety Report 23817597 (Version 1)
Quarter: 2024Q2

REPORT INFORMATION
  Report Type: Spontaneous
  Country: US (occurrence: US)
  Receive Date: 20240505
  Receipt Date: 20240505
  Transmission Date: 20240716
  Serious: Yes (Hospitalization)
  Sender: FDA-Public Use
  Company Number: US-BRISTOL-MYERS SQUIBB COMPANY-2024-065912

PATIENT
  Age: 82 Year
  Sex: Male
  Weight: 81.55 kg

DRUGS (3)
  1. LENALIDOMIDE [Suspect]
     Active Substance: LENALIDOMIDE
     Indication: Plasma cell myeloma
     Dosage: EVERY OTHER DAY ON DAYS 1-21 EVERY 28 DAYS
     Route: 048
     Dates: start: 20221017, end: 20240415
  2. XGEVA [Concomitant]
     Active Substance: DENOSUMAB
     Indication: Product used for unknown indication
     Route: 058
  3. DARZALEX [Concomitant]
     Active Substance: DARATUMUMAB
     Indication: Product used for unknown indication
     Route: 042

REACTIONS (4)
  - COVID-19 [Recovering/Resolving]
  - Haemoglobin decreased [Recovering/Resolving]
  - Blood creatinine abnormal [Recovering/Resolving]
  - Blood urea abnormal [Recovering/Resolving]

NARRATIVE: CASE EVENT DATE: 20240412
